FAERS Safety Report 21867550 (Version 1)
Quarter: 2023Q1

REPORT INFORMATION
  Report Type: Spontaneous
  Country: CH (occurrence: CH)
  Receive Date: 20230116
  Receipt Date: 20230116
  Transmission Date: 20230417
  Serious: Yes (Hospitalization, Other)
  Sender: FDA-Public Use
  Company Number: CH-TRIS PHARMA, INC.-23CH010657

PATIENT

DRUGS (1)
  1. MORPHINE SULFATE [Suspect]
     Active Substance: MORPHINE SULFATE
     Indication: Dyspnoea
     Dosage: 2 MILLIGRAM, Q 6 HR
     Route: 048

REACTIONS (3)
  - Acute kidney injury [Recovering/Resolving]
  - Hallucination [Recovered/Resolved]
  - Off label use [Unknown]
